FAERS Safety Report 17375006 (Version 1)
Quarter: 2020Q1

REPORT INFORMATION
  Report Type: Spontaneous
  Country: US (occurrence: US)
  Receive Date: 20200121
  Receipt Date: 20200121
  Transmission Date: 20200409
  Serious: Yes (Hospitalization)
  Sender: FDA-Public Use
  Company Number: None

PATIENT
  Age: 76 Year
  Sex: Male
  Weight: 64.1 kg

DRUGS (5)
  1. DOXORUBICIN HYDROCHLORIDE. [Suspect]
     Active Substance: DOXORUBICIN HYDROCHLORIDE
     Dates: start: 20191022, end: 20200107
  2. PREDNISONE. [Suspect]
     Active Substance: PREDNISONE
     Dates: start: 20191022, end: 20200107
  3. RITUXIMAB. [Suspect]
     Active Substance: RITUXIMAB
     Dates: start: 20191022, end: 20200102
  4. CYCLOPHOSPHAMIDE. [Suspect]
     Active Substance: CYCLOPHOSPHAMIDE
     Dates: start: 20191022, end: 20200107
  5. ETOPOSIDE (VP-16_ [Suspect]
     Active Substance: ETOPOSIDE
     Dates: start: 20191022, end: 20200107

REACTIONS (16)
  - Upper gastrointestinal haemorrhage [None]
  - Lung consolidation [None]
  - Pneumonia [None]
  - Diarrhoea [None]
  - Pyrexia [None]
  - Atrial fibrillation [None]
  - Vomiting [None]
  - Abdominal pain [None]
  - Enteritis [None]
  - Escherichia sepsis [None]
  - Asthenia [None]
  - Septic shock [None]
  - Muscular weakness [None]
  - Nausea [None]
  - Bacteraemia [None]
  - Staphylococcal sepsis [None]

NARRATIVE: CASE EVENT DATE: 20200113
